FAERS Safety Report 7293076-8 (Version None)
Quarter: 2011Q1

REPORT INFORMATION
  Report Type: 
  Country: None (occurrence: None)
  Receive Date: 20110215
  Receipt Date: 20110208
  Transmission Date: 20110831
  Serious: Yes (Other)
  Sender: FDA-Public Use
  Company Number: US-BAYER-2011-013473

PATIENT
  Sex: Female
  Weight: 65.76 kg

DRUGS (3)
  1. COREG [Concomitant]
  2. ALEVE [Suspect]
     Indication: PRODUCT USED FOR UNKNOWN INDICATION
     Dosage: 440 MG, UNK
     Route: 048
  3. PREDNISONE [Concomitant]
     Indication: ARTHRITIS
     Dosage: UNK

REACTIONS (4)
  - RASH [None]
  - DYSPNOEA [None]
  - HYPERSENSITIVITY [None]
  - COUGH [None]
